FAERS Safety Report 8334099 (Version 5)
Quarter: 2013Q1

REPORT INFORMATION
  Report Type: Report from Study
  Country: FR (occurrence: FR)
  Receive Date: 20120112
  Receipt Date: 20130308
  Transmission Date: 20140127
  Serious: Yes (Other)
  Sender: FDA-Public Use
  Company Number: FR-VERTEX PHARMACEUTICALS INC.-000000000000000066

PATIENT
  Age: 38 Year
  Sex: Female
  Weight: 65 kg

DRUGS (14)
  1. VX-950 (TELAPREVIR) [Suspect]
     Indication: HEPATITIS C
     Dosage: DOSAGE FORM: TABLET
     Route: 048
     Dates: start: 20120829, end: 20111121
  2. COPEGUS [Suspect]
     Indication: HEPATITIS C
     Dosage: 1000 MG, QD
     Dates: start: 20111024
  3. PEGASYS [Suspect]
     Indication: HEPATITIS C
     Dosage: 180 ?G, QW
     Dates: start: 20110801
  4. TRUVADA [Concomitant]
     Indication: HIV INFECTION
     Dosage: DOSAGE FORM: CAPSULE
     Dates: start: 20051114
  5. REYATAZ [Concomitant]
     Indication: HIV INFECTION
     Dosage: ^300^ (UNITS NOT PROVIDED)
     Dates: start: 20110127
  6. NEORECORMON [Concomitant]
     Indication: ANAEMIA
     Dosage: 30000 DF, UNK
     Dates: start: 20111112, end: 20120710
  7. IBUPROFEN [Concomitant]
     Indication: MIGRAINE
     Dosage: DOSAGE FORM: UNSPECIFIED AS NEEDED
     Dates: start: 20110815
  8. IBUPROFEN [Concomitant]
     Dosage: DOSAGE FORM: UNSPECIFIED
  9. PROZAC [Concomitant]
     Indication: ANXIETY
     Dosage: ^20^ (UNITS NOT PROVIDED)
     Dates: start: 200709
  10. ZOMIG [Concomitant]
     Indication: MIGRAINE
     Dosage: ^2.5^ (UNITS NOT PROVIDED) AS NEEDED
     Dates: start: 20110815
  11. XYZAL [Concomitant]
     Indication: PRURITUS
     Dosage: ^5^ (UNITS NOT PROVIDED)
     Dates: start: 20110912
  12. TITANOREINE [Concomitant]
     Indication: HAEMORRHOIDS
     Dosage: UNK, BID
     Dates: start: 20110912
  13. NORVIR [Concomitant]
     Indication: HIV INFECTION
     Dosage: ^100^ (UNITS NOT PROVIDED)
     Dates: start: 20110127
  14. OTHER THERAPEUTIC PRODUCT [Concomitant]
     Indication: CONVULSION PROPHYLAXIS
     Dates: start: 19990205

REACTIONS (1)
  - Anaemia [Recovered/Resolved]
